FAERS Safety Report 9825127 (Version 3)
Quarter: 2014Q1

REPORT INFORMATION
  Report Type: Spontaneous
  Country: GB (occurrence: GB)
  Receive Date: 20140117
  Receipt Date: 20140226
  Transmission Date: 20141002
  Serious: Yes (Other)
  Sender: FDA-Public Use
  Company Number: GB-DRREDDYS-GER/UKI/14/0037161

PATIENT
  Sex: Female

DRUGS (18)
  1. CETIRIZINE [Suspect]
     Indication: ANGIOEDEMA
  2. CETIRIZINE [Suspect]
     Indication: URTICARIA CHRONIC
  3. FEXOFENADINE [Suspect]
     Indication: ANGIOEDEMA
  4. FEXOFENADINE [Suspect]
     Indication: URTICARIA CHRONIC
  5. CICLOSPORIN [Suspect]
     Indication: ANGIOEDEMA
  6. CICLOSPORIN [Suspect]
     Indication: URTICARIA CHRONIC
  7. DAPSONE [Suspect]
     Indication: ANGIOEDEMA
  8. DAPSONE [Suspect]
     Indication: URTICARIA CHRONIC
  9. HYDROXYCHLOROQUINE [Suspect]
     Indication: ANGIOEDEMA
  10. HYDROXYCHLOROQUINE [Suspect]
     Indication: URTICARIA CHRONIC
  11. HYDROXYZINE [Suspect]
     Indication: ANGIOEDEMA
  12. HYDROXYZINE [Suspect]
     Indication: URTICARIA CHRONIC
  13. LORATADINE [Suspect]
     Indication: ANGIOEDEMA
     Route: 048
  14. LORATADINE [Suspect]
     Indication: URTICARIA CHRONIC
  15. METHOTREXATE [Suspect]
     Indication: ANGIOEDEMA
     Route: 048
  16. METHOTREXATE [Suspect]
     Indication: URTICARIA CHRONIC
  17. PREDNISOLONE [Suspect]
     Indication: ANGIOEDEMA
  18. PREDNISOLONE [Suspect]
     Indication: URTICARIA CHRONIC

REACTIONS (6)
  - Angioedema [Not Recovered/Not Resolved]
  - Urticaria [Not Recovered/Not Resolved]
  - Drug ineffective [Unknown]
  - Blood pressure increased [Unknown]
  - Drug effect incomplete [Not Recovered/Not Resolved]
  - Asthma [Not Recovered/Not Resolved]
